FAERS Safety Report 20528272 (Version 3)
Quarter: 2022Q1

REPORT INFORMATION
  Report Type: Spontaneous
  Country: JP (occurrence: JP)
  Receive Date: 20220228
  Receipt Date: 20220314
  Transmission Date: 20220423
  Serious: Yes (Life-Threatening, Hospitalization)
  Sender: FDA-Public Use
  Company Number: JP-CELGENE-JPN-20220207471

PATIENT
  Age: 73 Year
  Sex: Male

DRUGS (3)
  1. ABRAXANE [Suspect]
     Active Substance: PACLITAXEL
     Indication: Neuroendocrine tumour of the lung
     Route: 041
  2. CARBOPLATIN [Suspect]
     Active Substance: CARBOPLATIN
     Indication: Neuroendocrine tumour of the lung
     Route: 041
  3. TECENTRIQ [Suspect]
     Active Substance: ATEZOLIZUMAB
     Indication: Neuroendocrine tumour of the lung
     Route: 041

REACTIONS (2)
  - Pathological fracture [Recovered/Resolved]
  - Respiratory tract haemorrhage [Recovered/Resolved]
